FAERS Safety Report 4685285-9 (Version None)
Quarter: 2005Q2

REPORT INFORMATION
  Report Type: 
  Country: None (occurrence: None)
  Receive Date: 20050608
  Receipt Date: 20050526
  Transmission Date: 20051028
  Serious: Yes (Disabling)
  Sender: FDA-Public Use
  Company Number: CA-JNJFOC-20050600318

PATIENT
  Age: 81 Year
  Sex: Male

DRUGS (7)
  1. REMINYL [Suspect]
  2. RISPERDAL [Concomitant]
     Indication: DEPRESSION
  3. ELTROXIN [Concomitant]
     Indication: HYPOTHYROIDISM
  4. PLAVIX [Concomitant]
     Indication: ANGINA PECTORIS
  5. MOBIC [Concomitant]
     Indication: OSTEOARTHRITIS
  6. PARLET [Concomitant]
  7. CLONAZEPAM [Concomitant]
     Indication: INSOMNIA

REACTIONS (3)
  - ARTHRALGIA [None]
  - ASTHENIA [None]
  - PAIN IN EXTREMITY [None]
